FAERS Safety Report 7687967-3 (Version None)
Quarter: 2011Q3

REPORT INFORMATION
  Report Type: 
  Country: None (occurrence: None)
  Receive Date: 20110816
  Receipt Date: 20110816
  Transmission Date: 20111222
  Serious: Yes (Life-Threatening, Hospitalization)
  Sender: FDA-Public Use
  Company Number: None

PATIENT
  Age: 58 Year
  Sex: Male

DRUGS (4)
  1. METOPROLOL TARTRATE [Suspect]
     Indication: HYPERTENSION
     Dosage: 25 MG ONCE PO
     Route: 048
     Dates: start: 20110622, end: 20110623
  2. METOPROLOL TARTRATE [Suspect]
     Indication: CARDIOVASCULAR DISORDER
     Dosage: 25 MG ONCE PO
     Route: 048
     Dates: start: 20110622, end: 20110623
  3. METOPROLOL TARTRATE [Suspect]
     Indication: SURGERY
     Dosage: 25 MG ONCE PO
     Route: 048
     Dates: start: 20110622, end: 20110623
  4. METOPROLOL TARTRATE [Suspect]
     Indication: ADVERSE DRUG REACTION
     Dosage: 25 MG ONCE PO
     Route: 048
     Dates: start: 20110622, end: 20110623

REACTIONS (2)
  - ATRIOVENTRICULAR BLOCK SECOND DEGREE [None]
  - DRUG HYPERSENSITIVITY [None]
